FAERS Safety Report 25494368 (Version 2)
Quarter: 2025Q3

REPORT INFORMATION
  Report Type: Spontaneous
  Country: JP (occurrence: JP)
  Receive Date: 20250630
  Receipt Date: 20250725
  Transmission Date: 20251020
  Serious: Yes (Other)
  Sender: ROCHE
  Company Number: JP-CHUGAI-2025020570

PATIENT
  Age: 73 Year
  Sex: Female

DRUGS (3)
  1. ACTEMRA [Suspect]
     Active Substance: TOCILIZUMAB
     Indication: Castleman^s disease
     Route: 065
  2. RITUXAN [Suspect]
     Active Substance: RITUXIMAB
     Indication: Castleman^s disease
     Route: 042
  3. METHYLPREDNISOLONE SODIUM SUCCINATE [Concomitant]
     Active Substance: METHYLPREDNISOLONE SODIUM SUCCINATE
     Indication: Castleman^s disease
     Route: 065

REACTIONS (2)
  - Platelet count decreased [Recovered/Resolved]
  - Off label use [Unknown]
